FAERS Safety Report 5644644-8 (Version None)
Quarter: 2008Q1

REPORT INFORMATION
  Report Type: 
  Country: None (occurrence: None)
  Receive Date: 20080229
  Receipt Date: 20070426
  Transmission Date: 20080703
  Serious: No
  Sender: FDA-Public Use
  Company Number: A0649334A

PATIENT
  Age: 75 Year
  Sex: Female
  Weight: 63.2 kg

DRUGS (4)
  1. VALTREX [Suspect]
     Indication: SKIN DISORDER
     Dosage: 1G THREE TIMES PER DAY
  2. MAALOX [Suspect]
     Indication: DYSPEPSIA
     Route: 048
     Dates: start: 20060930, end: 20061003
  3. LOPRESSOR [Concomitant]
  4. AMBIEN [Concomitant]

REACTIONS (2)
  - DRUG ADMINISTRATION ERROR [None]
  - FAECES DISCOLOURED [None]
